FAERS Safety Report 8472979-2 (Version None)
Quarter: 2012Q2

REPORT INFORMATION
  Report Type: 
  Country: None (occurrence: None)
  Receive Date: 20120627
  Receipt Date: 20120622
  Transmission Date: 20120825
  Serious: Yes (Death, Other)
  Sender: FDA-Public Use
  Company Number: US-AMGEN-US351165

PATIENT
  Age: 76 Year
  Sex: Male
  Weight: 89 kg

DRUGS (3)
  1. CORTICOSTEROID NOS [Concomitant]
     Dosage: UNK
  2. NPLATE [Suspect]
     Indication: IDIOPATHIC THROMBOCYTOPENIC PURPURA
     Dosage: UNK UNK, QWK
  3. GLYBURIDE [Concomitant]
     Dosage: UNK UNK, QD
     Route: 048
     Dates: start: 20061031

REACTIONS (4)
  - CARDIAC ARREST [None]
  - RASH GENERALISED [None]
  - SKIN HAEMORRHAGE [None]
  - SKIN FISSURES [None]
